FAERS Safety Report 11935524 (Version 4)
Quarter: 2017Q4

REPORT INFORMATION
  Report Type: Spontaneous
  Country: US (occurrence: US)
  Receive Date: 20160121
  Receipt Date: 20171120
  Transmission Date: 20180320
  Serious: No
  Sender: FDA-Public Use
  Company Number: US-PFIZER INC-2016025667

PATIENT
  Age: 80 Year
  Sex: Female

DRUGS (17)
  1. LYRICA [Suspect]
     Active Substance: PREGABALIN
     Dosage: 150 MG, 2X/DAY
     Route: 048
  2. VITAMIN D3 [Concomitant]
     Active Substance: CHOLECALCIFEROL
     Dosage: 1000 IU, 1X/DAY
     Route: 048
  3. ARICEPT [Concomitant]
     Active Substance: DONEPEZIL HYDROCHLORIDE
     Dosage: 10 MG, 1X/DAY, (AT BEDTIME )
     Route: 048
  4. MAGNESIUM [Concomitant]
     Active Substance: MAGNESIUM
     Dosage: 500 MG, 1X/DAY, (1 TABLET WITH A MEAL )
     Route: 048
  5. PRAVASTATIN SODIUM. [Concomitant]
     Active Substance: PRAVASTATIN SODIUM
     Dosage: UNK UNK, DAILY, (80 TABLET)
     Route: 048
  6. MELATONIN NA [Concomitant]
     Dosage: UNK UNK, AS NEEDED, (1 TABLET AT BEDTIME AS NEEDED WITH FOOD, ONCE A DAY)
     Route: 048
  7. NITROGLYCERIN. [Concomitant]
     Active Substance: NITROGLYCERIN
     Dosage: 0.4 MG, UNK, (1 TABLET UNDER THE TONGUE )
     Route: 060
  8. TRAMADOL HCL [Concomitant]
     Active Substance: TRAMADOL HYDROCHLORIDE
     Indication: PAIN
     Dosage: 50 MG, AS NEEDED, (EVERY 5 HRS)
     Route: 048
     Dates: start: 20170824
  9. GINKGO BILOBA [Concomitant]
     Active Substance: GINKGO
     Dosage: 60 MG, UNK
     Route: 048
  10. ASPIR 81 [Concomitant]
     Dosage: 81 MG, 1X/DAY
     Route: 048
  11. DETROL LA [Concomitant]
     Active Substance: TOLTERODINE TARTRATE
     Dosage: 6 MG, DAILY, (2 CAPS AM/1 CAP PM)
     Route: 048
  12. ALPRAZOLAM. [Concomitant]
     Active Substance: ALPRAZOLAM
     Dosage: 0.25 MG, AS NEEDED, (1 TABLET ORALLY TWICE A DAY)
     Route: 048
     Dates: start: 20170825
  13. NIACIN. [Concomitant]
     Active Substance: NIACIN
     Dosage: 500 MG, 1X/DAY
     Route: 048
  14. CALCIUM [Concomitant]
     Active Substance: CALCIUM
     Dosage: 500 MG, 1X/DAY, [1 TABLET WITH MEALS]
     Route: 048
  15. OMEGA 3 [Concomitant]
     Active Substance: OMEGA-3 FATTY ACIDS
     Dosage: 1000 MG, 1X/DAY
     Route: 048
  16. DETROL LA [Concomitant]
     Active Substance: TOLTERODINE TARTRATE
     Dosage: 2 MG, 1X/DAY, (QD IN AM)
  17. COENZYME Q10 [Concomitant]
     Active Substance: UBIDECARENONE
     Dosage: 100 MG, 1X/DAY, (1 CAPSULE WITH A MEAL )
     Route: 048

REACTIONS (3)
  - Pyrexia [Unknown]
  - Influenza [Unknown]
  - Diarrhoea [Unknown]
